FAERS Safety Report 4876085-5 (Version None)
Quarter: 2006Q1

REPORT INFORMATION
  Report Type: 
  Country: None (occurrence: None)
  Receive Date: 20060110
  Receipt Date: 20060103
  Transmission Date: 20060701
  Serious: Yes (Hospitalization, Other)
  Sender: FDA-Public Use
  Company Number: FR-SP-2006-00027

PATIENT
  Age: 74 Year
  Sex: Male

DRUGS (3)
  1. IMMUCYST [Suspect]
     Indication: BLADDER CANCER
     Route: 043
     Dates: start: 20050927
  2. IMMUCYST [Suspect]
     Route: 043
     Dates: start: 20050927
  3. IMMUCYST [Suspect]
     Route: 043
     Dates: start: 20050927

REACTIONS (9)
  - ASTHMA [None]
  - BOVINE TUBERCULOSIS [None]
  - CHOLESTASIS [None]
  - CYTOLYTIC HEPATITIS [None]
  - GRANULOMATOUS LIVER DISEASE [None]
  - HEPATOSPLENOMEGALY [None]
  - MICROLITHIASIS [None]
  - SEPTIC SHOCK [None]
  - TUBERCULOSIS LIVER [None]
